FAERS Safety Report 15626597 (Version 1)
Quarter: 2018Q4

REPORT INFORMATION
  Report Type: Spontaneous
  Country: US (occurrence: US)
  Receive Date: 20181112
  Receipt Date: 20181112
  Transmission Date: 20190205
  Serious: Yes (Hospitalization)
  Sender: FDA-Public Use
  Company Number: None

PATIENT

DRUGS (1)
  1. WELBY ACETAMINOPHEN [Suspect]
     Active Substance: ACETAMINOPHEN
     Indication: ANALGESIC THERAPY
     Dates: start: 20181106, end: 20181111

REACTIONS (3)
  - Loss of consciousness [None]
  - Vomiting [None]
  - Respiratory arrest [None]

NARRATIVE: CASE EVENT DATE: 20181111
